FAERS Safety Report 24721112 (Version 1)
Quarter: 2024Q4

REPORT INFORMATION
  Report Type: Report from Study
  Country: JP (occurrence: JP)
  Receive Date: 20241211
  Receipt Date: 20241211
  Transmission Date: 20250115
  Serious: Yes (Hospitalization)
  Sender: INSMED
  Company Number: JP-INSMED, INC.-2023-00985-JP

PATIENT
  Sex: Female
  Weight: 39.8 kg

DRUGS (10)
  1. ARIKAYCE [Suspect]
     Active Substance: AMIKACIN
     Indication: Mycobacterium avium complex infection
     Dosage: 590 MILLIGRAM, QD
     Route: 055
     Dates: start: 20230310, end: 20230315
  2. ARIKAYCE [Suspect]
     Active Substance: AMIKACIN
     Dosage: 590 MILLIGRAM, QD
     Route: 055
     Dates: start: 20230322, end: 20230330
  3. ARIKAYCE [Suspect]
     Active Substance: AMIKACIN
     Dosage: 590 MILLIGRAM, QOD
     Route: 055
     Dates: start: 20230408, end: 2023
  4. ARIKAYCE [Suspect]
     Active Substance: AMIKACIN
     Dosage: 590 MILLIGRAM, EVERY TWO DAYS
     Route: 055
     Dates: start: 2023, end: 2023
  5. ARIKAYCE [Suspect]
     Active Substance: AMIKACIN
     Dosage: 590 MILLIGRAM, QOD
     Route: 055
     Dates: start: 202308, end: 202410
  6. ARIKAYCE [Suspect]
     Active Substance: AMIKACIN
     Dosage: UNK UNK
     Route: 055
     Dates: start: 202411, end: 20241125
  7. RIFAMPIN [Concomitant]
     Active Substance: RIFAMPIN
     Indication: Mycobacterium avium complex infection
     Dosage: 450 MILLIGRAM/DAY
     Route: 065
     Dates: start: 20200916
  8. ETHAMBUTOL [Concomitant]
     Active Substance: ETHAMBUTOL HYDROCHLORIDE
     Indication: Mycobacterium avium complex infection
     Dosage: 750 MILLIGRAM/DAY
     Route: 065
     Dates: start: 20200916, end: 20211102
  9. ETHAMBUTOL [Concomitant]
     Active Substance: ETHAMBUTOL HYDROCHLORIDE
     Dosage: 500 MILLIGRAM/DAY
     Route: 065
     Dates: start: 20211103
  10. CLARITHROMYCIN [Concomitant]
     Active Substance: CLARITHROMYCIN
     Indication: Mycobacterium avium complex infection
     Dosage: 800 MILLIGRAM/DAY
     Route: 065
     Dates: start: 20200916

REACTIONS (22)
  - Hospitalisation [Unknown]
  - Haemoptysis [Not Recovered/Not Resolved]
  - Sputum discoloured [Unknown]
  - Dysgeusia [Unknown]
  - Throat irritation [Not Recovered/Not Resolved]
  - Productive cough [Unknown]
  - Cough [Not Recovered/Not Resolved]
  - Wheezing [Not Recovered/Not Resolved]
  - Dysphonia [Recovered/Resolved]
  - Oral discomfort [Unknown]
  - Vomiting [Unknown]
  - Retching [Unknown]
  - Hypoacusis [Not Recovered/Not Resolved]
  - Dyspnoea [Not Recovered/Not Resolved]
  - Wrong technique in product usage process [Unknown]
  - Accidental underdose [Unknown]
  - Off label use [Unknown]
  - Product preparation error [Unknown]
  - Drug dose omission by device [Unknown]
  - Device breakage [Unknown]
  - Device maintenance issue [Unknown]
  - Therapy interrupted [Unknown]

NARRATIVE: CASE EVENT DATE: 20230101
